FAERS Safety Report 25403501 (Version 1)
Quarter: 2025Q2

REPORT INFORMATION
  Report Type: Spontaneous
  Country: US (occurrence: US)
  Receive Date: 20250605
  Receipt Date: 20250605
  Transmission Date: 20250717
  Serious: No
  Sender: SPRINGWORKS THERAPEUTIC
  Company Number: US-SPRINGWORKS THERAPEUTICS-SW-002485

PATIENT

DRUGS (1)
  1. OGSIVEO [Suspect]
     Active Substance: NIROGACESTAT HYDROBROMIDE
     Indication: Abdominal neoplasm
     Dates: start: 202408

REACTIONS (5)
  - Rash [Recovered/Resolved]
  - Hidradenitis [Recovered/Resolved]
  - Diarrhoea [Unknown]
  - Therapy interrupted [Unknown]
  - Insurance issue [Unknown]
